FAERS Safety Report 13831195 (Version 3)
Quarter: 2017Q3

REPORT INFORMATION
  Report Type: Spontaneous
  Country: CR (occurrence: CR)
  Receive Date: 20170803
  Receipt Date: 20170904
  Transmission Date: 20171127
  Serious: Yes (Life-Threatening, Other)
  Sender: FDA-Public Use
  Company Number: PHHY2017CR111967

PATIENT
  Age: 45 Year
  Sex: Female
  Weight: 80 kg

DRUGS (1)
  1. REVOLADE [Suspect]
     Active Substance: ELTROMBOPAG
     Indication: IMMUNE THROMBOCYTOPENIC PURPURA
     Dosage: 75 MG, QD
     Route: 048
     Dates: start: 201605, end: 201707

REACTIONS (9)
  - Myelofibrosis [Unknown]
  - Myeloproliferative neoplasm [Unknown]
  - White blood cell count increased [Unknown]
  - Anaemia [Unknown]
  - Lymphopenia [Unknown]
  - Mean cell volume decreased [Unknown]
  - Neutrophilia [Unknown]
  - Monocytosis [Unknown]
  - Thrombocytopenia [Unknown]

NARRATIVE: CASE EVENT DATE: 20170524
